FAERS Safety Report 25320106 (Version 2)
Quarter: 2025Q3

REPORT INFORMATION
  Report Type: Spontaneous
  Country: US (occurrence: US)
  Receive Date: 20250515
  Receipt Date: 20250818
  Transmission Date: 20251020
  Serious: Yes (Hospitalization, Other)
  Sender: SANOFI AVENTIS
  Company Number: US-SA-2025SA137710

PATIENT
  Age: 79 Year
  Sex: Female

DRUGS (1)
  1. DUPIXENT [Suspect]
     Active Substance: DUPILUMAB
     Dosage: 300MG QOW
     Route: 058

REACTIONS (10)
  - Dementia [Unknown]
  - Diabetes mellitus [Unknown]
  - Renal failure [Unknown]
  - Hospitalisation [Unknown]
  - Wound [Recovered/Resolved]
  - Dry skin [Unknown]
  - Blood pressure abnormal [Unknown]
  - Scratch [Unknown]
  - Pruritus [Unknown]
  - Therapeutic response shortened [Unknown]
